FAERS Safety Report 4500085-8 (Version None)
Quarter: 2004Q4

REPORT INFORMATION
  Report Type: 
  Country: None (occurrence: None)
  Receive Date: 20041110
  Receipt Date: 20041026
  Transmission Date: 20050328
  Serious: Yes (Other)
  Sender: FDA-Public Use
  Company Number: C-04-0059

PATIENT
  Sex: Male

DRUGS (1)
  1. MYTUSSIN AC COUGH SYRUP (SUGAR FREE), MGP PRODUCT CODE 8045 [Suspect]

REACTIONS (1)
  - DRUG EFFECT DECREASED [None]
